FAERS Safety Report 6043810-X (Version None)
Quarter: 2009Q1

REPORT INFORMATION
  Report Type: 
  Country: None (occurrence: None)
  Receive Date: 20090115
  Receipt Date: 20081020
  Transmission Date: 20090719
  Serious: Yes (Hospitalization)
  Sender: FDA-Public Use
  Company Number: 592446

PATIENT
  Age: 70 Year
  Sex: Male

DRUGS (7)
  1. CEFTRIAXONE SODIUM (CEFTRIAXONE SODIUM) [Suspect]
     Indication: BACTERIAL PERICARDITIS
     Dosage: INTRAVENOUS
     Route: 042
  2. WARFARIN SODIUM [Concomitant]
  3. METOPROLOL TARTRATE [Concomitant]
  4. ACETAMINOPHEN [Concomitant]
  5. LASIX [Concomitant]
  6. DIGOXIN [Concomitant]
  7. ASPIRIN [Concomitant]

REACTIONS (1)
  - HAEMOLYTIC ANAEMIA [None]
